FAERS Safety Report 6317282-1 (Version None)
Quarter: 2009Q3

REPORT INFORMATION
  Report Type: 
  Country: None (occurrence: None)
  Receive Date: 20090821
  Receipt Date: 20090814
  Transmission Date: 20100115
  Serious: Yes (Hospitalization)
  Sender: FDA-Public Use
  Company Number: US-WYE-H10250309

PATIENT
  Sex: Female
  Weight: 96.1 kg

DRUGS (27)
  1. RAPAMUNE [Suspect]
     Indication: PROPHYLAXIS AGAINST TRANSPLANT REJECTION
     Route: 048
     Dates: start: 20090418
  2. ACTOS [Concomitant]
     Indication: DIABETES MELLITUS
     Route: 065
     Dates: start: 20090415
  3. ALLEGRA D 24 HOUR [Concomitant]
     Indication: SINUS CONGESTION
     Dosage: 180 MG EVERY 1 PRN
     Route: 065
  4. ALLEGRA D 24 HOUR [Concomitant]
     Indication: HYPERSENSITIVITY
  5. AMARYL [Concomitant]
     Indication: DIABETES MELLITUS
     Route: 048
  6. AMITIZA [Concomitant]
     Indication: CONSTIPATION
     Dosage: 24 UG EVERY 1 PRN
     Route: 065
  7. CALCIUM WITH VITAMIN D [Concomitant]
     Indication: MINERAL SUPPLEMENTATION
     Route: 065
  8. CARVEDILOL [Concomitant]
     Indication: HYPERTENSION
     Route: 065
  9. CORTIZONE 10 [Concomitant]
     Indication: DERMATITIS ALLERGIC
     Dosage: 1% TWICE DAILY, AS NEEDED
     Route: 065
  10. FIBERALL [Concomitant]
     Indication: CONSTIPATION
     Dosage: 1 TO 2 CAPSULES DAILY
     Route: 065
  11. FISH OIL [Concomitant]
     Indication: LIPIDS INCREASED
     Route: 065
  12. FLONASE [Concomitant]
     Indication: SINUSITIS
     Route: 045
  13. FUROSEMIDE [Concomitant]
     Indication: OEDEMA
     Route: 065
     Dates: start: 20090612
  14. IRON [Concomitant]
     Indication: ANAEMIA
     Route: 065
  15. JANUVIA [Concomitant]
     Indication: DIABETES MELLITUS
     Route: 065
  16. MULTI-VITAMINS [Concomitant]
     Indication: VITAMIN SUPPLEMENTATION
     Dosage: DOSE UNKNOWN
     Route: 065
  17. MAGNESIUM OXIDE [Concomitant]
     Indication: MEDICAL DIET
     Route: 065
  18. NEXIUM [Concomitant]
     Indication: GASTROOESOPHAGEAL REFLUX DISEASE
     Route: 065
  19. K-DUR [Concomitant]
     Indication: MEDICAL DIET
     Route: 065
     Dates: start: 20090612
  20. ROBITUSSIN COUGH [Concomitant]
     Indication: COUGH
     Dosage: DOSE UNKNOWN, AS NEEDED
     Route: 065
  21. SALAGEN [Concomitant]
     Indication: DRY MOUTH
     Route: 065
  22. ULTRAM [Concomitant]
     Indication: PAIN
     Dosage: 50 MG, AS NEEDED
     Route: 065
  23. NIFEDIPINE [Concomitant]
     Indication: FURUNCLE
     Dosage: .3 % EVERY 1 PRN
     Route: 065
     Dates: start: 20090101
  24. VITAMIN D [Concomitant]
     Indication: OSTEOPENIA
     Route: 065
  25. VITAMIN D [Concomitant]
     Indication: MEDICAL DIET
  26. MUCINEX [Concomitant]
     Indication: MIDDLE EAR EFFUSION
     Dosage: 600 MG DAILY, AS NEEDED
     Route: 065
  27. CELLCEPT [Suspect]
     Indication: PROPHYLAXIS AGAINST TRANSPLANT REJECTION
     Route: 065

REACTIONS (2)
  - CHEST PAIN [None]
  - DYSPNOEA EXERTIONAL [None]
